FAERS Safety Report 19349535 (Version 1)
Quarter: 2021Q2

REPORT INFORMATION
  Report Type: Spontaneous
  Country: GB (occurrence: GB)
  Receive Date: 20210531
  Receipt Date: 20210531
  Transmission Date: 20210717
  Serious: Yes (Other)
  Sender: FDA-Public Use
  Company Number: GB-ADVANZ PHARMA-202105003719

PATIENT

DRUGS (47)
  1. ATEZOLIZUMAB. [Suspect]
     Active Substance: ATEZOLIZUMAB
     Dosage: 1200 MG, Q3WEEKS
  2. AQUEOUS CREAM [Concomitant]
     Dosage: UNK, EVERY 0.5 DAY
  3. DENOSUMAB [Concomitant]
     Active Substance: DENOSUMAB
     Dosage: UNK, MONTHLY
     Dates: start: 20201124
  4. PARACETAMOL [Concomitant]
     Active Substance: ACETAMINOPHEN
     Indication: PAIN
  5. SODIUM CHLORIDE. [Concomitant]
     Active Substance: SODIUM CHLORIDE
     Dates: start: 20201124, end: 20201124
  6. TRIMOVATE [Concomitant]
     Active Substance: CLOBETASONE BUTYRATE\NYSTATIN\OXYTETRACYCLINE CALCIUM
     Dosage: UNK, EVERY 0.5 DAY
     Dates: end: 20210109
  7. CARBOPLATIN. [Suspect]
     Active Substance: CARBOPLATIN
     Indication: SMALL CELL LUNG CANCER EXTENSIVE STAGE
     Dosage: 450 MG
     Dates: start: 20201124
  8. CHLORPHENAMINE [Concomitant]
     Active Substance: CHLORPHENIRAMINE MALEATE
     Dosage: (DAILY) QD
     Dates: start: 20201124, end: 20201124
  9. CLOBETASOL [Concomitant]
     Active Substance: CLOBETASOL
     Dosage: (DAILY) QD
     Dates: end: 20210108
  10. HYDROCORTISONE. [Concomitant]
     Active Substance: HYDROCORTISONE
     Dosage: 100 MG, DAILY
     Dates: start: 20201124, end: 20201124
  11. ONDANSETRON [Concomitant]
     Active Substance: ONDANSETRON
     Dosage: (DAILY) QD
     Dates: start: 20201124, end: 20201124
  12. OXYGEN. [Concomitant]
     Active Substance: OXYGEN
     Dosage: (DAILY) QD
     Dates: start: 20201124, end: 20201124
  13. SIMVASTATIN. [Concomitant]
     Active Substance: SIMVASTATIN
     Dosage: (DAILY) QD
  14. DEXAMETHASONE. [Suspect]
     Active Substance: DEXAMETHASONE
     Dosage: (DAILY) QD
     Dates: start: 20201125, end: 20201127
  15. DEXAMETHASONE. [Suspect]
     Active Substance: DEXAMETHASONE
     Dosage: 8 MG
  16. ETOPOSIDE. [Suspect]
     Active Substance: ETOPOSIDE
     Indication: SMALL CELL LUNG CANCER EXTENSIVE STAGE
     Dosage: 200 MG
     Dates: start: 20201124
  17. CYCLIZINE [Concomitant]
     Active Substance: CYCLIZINE
     Dosage: UNK, EVERY 0.33 DAY
  18. DIHYDROCODEINE [Concomitant]
     Active Substance: DIHYDROCODEINE
     Indication: PAIN
  19. MAGNESIUM SULFATE. [Concomitant]
     Active Substance: MAGNESIUM SULFATE
     Dosage: (DAILY) QD
     Dates: end: 20201226
  20. PHOSPHATE ION [Concomitant]
     Active Substance: PHOSPHATE ION
     Dosage: (DAILY) QD
     Dates: end: 20201226
  21. DEXAMETHASONE. [Suspect]
     Active Substance: DEXAMETHASONE
     Dosage: (DAILY) QD
  22. DALTEPARIN [Concomitant]
     Active Substance: DALTEPARIN
     Dosage: (DAILY) QD
     Dates: end: 20210125
  23. ONDANSETRON [Concomitant]
     Active Substance: ONDANSETRON
     Dosage: (DAILY) QD
     Dates: end: 20201215
  24. DEXAMETHASONE. [Suspect]
     Active Substance: DEXAMETHASONE
     Dosage: (DAILY) QD
     Dates: start: 20201124, end: 20201124
  25. ATEZOLIZUMAB. [Suspect]
     Active Substance: ATEZOLIZUMAB
     Indication: SMALL CELL LUNG CANCER EXTENSIVE STAGE
     Dosage: 1200 MG, Q3WEEKS
     Dates: start: 20201124
  26. ADCAL [Concomitant]
     Dosage: UNK, EVERY 0.5 DAY
     Dates: start: 20201124
  27. AMITRIPTYLINE [Concomitant]
     Active Substance: AMITRIPTYLINE
  28. CALCIUM GLUCONATE. [Concomitant]
     Active Substance: CALCIUM GLUCONATE
     Dosage: (DAILY) QD
     Dates: end: 20201226
  29. CHLORPHENAMINE [Concomitant]
     Active Substance: CHLORPHENIRAMINE MALEATE
     Dosage: 10 MG
     Dates: end: 20201215
  30. PHOSPHATE SANDOZ EFFERVESCENT [Concomitant]
     Dosage: UNK, EVERY 0.33 DAYS
     Dates: end: 20210108
  31. PHYTOMENADIONE [Concomitant]
     Active Substance: PHYTONADIONE
     Dosage: UNK, EVERY 0.5 DAY
     Dates: end: 20201226
  32. PREDNISOLONE. [Suspect]
     Active Substance: PREDNISOLONE
     Dosage: (DAILY) QD
     Dates: end: 20210121
  33. CALCIUM CARBONATE. [Concomitant]
     Active Substance: CALCIUM CARBONATE
     Dosage: (DAILY) QD
     Dates: end: 20210108
  34. LOPERAMIDE [Concomitant]
     Active Substance: LOPERAMIDE
     Dates: start: 20201103
  35. NYSTATIN. [Concomitant]
     Active Substance: NYSTATIN
     Dosage: EVERY 4 DAY
     Dates: end: 20210107
  36. POTASSIUM CHLORIDE. [Concomitant]
     Active Substance: POTASSIUM CHLORIDE
     Dosage: UNK, EVERY 0.33 DAY
     Dates: end: 20210104
  37. VANCOMYCIN [Concomitant]
     Active Substance: VANCOMYCIN
     Dosage: UNK, EVERY 4 DAY
     Dates: end: 20210120
  38. DEXAMETHASONE. [Suspect]
     Active Substance: DEXAMETHASONE
     Dosage: (DAILY) QD
  39. ATEZOLIZUMAB. [Suspect]
     Active Substance: ATEZOLIZUMAB
     Dosage: 1200 MG, Q3WEEKS
     Dates: start: 20201103
  40. CO?AMOXICLAV [Concomitant]
     Active Substance: AMOXICILLIN\CLAVULANATE POTASSIUM
     Dosage: UNK, EVERY 0.33 DAY
     Dates: end: 20210107
  41. FILGRASTIM [Concomitant]
     Active Substance: FILGRASTIM
     Dosage: (DAILY) QD
     Dates: end: 20201226
  42. MEROPENEM. [Concomitant]
     Active Substance: MEROPENEM
     Dosage: UNK, EVERY 0.33 DAY
     Dates: end: 20210103
  43. ONDANSETRON [Concomitant]
     Active Substance: ONDANSETRON
     Dosage: UNK, EVERY 0.33 DAY
  44. ACICLOVIR [Concomitant]
     Active Substance: ACYCLOVIR
     Dates: end: 20210126
  45. DOMPERIDONE [Concomitant]
     Active Substance: DOMPERIDONE
     Dates: start: 20201103
  46. FILGRASTIM [Concomitant]
     Active Substance: FILGRASTIM
     Dosage: (DAILY) QD
     Dates: start: 20201128, end: 20201205
  47. METHYLPREDNISOLONE. [Concomitant]
     Active Substance: METHYLPREDNISOLONE
     Dosage: (DAILY) QD
     Dates: end: 20210120

REACTIONS (1)
  - Pancreatitis chronic [Not Recovered/Not Resolved]

NARRATIVE: CASE EVENT DATE: 202012
